FAERS Safety Report 9715445 (Version 2)
Quarter: 2013Q4

REPORT INFORMATION
  Report Type: Spontaneous
  Country: NZ (occurrence: NZ)
  Receive Date: 20131127
  Receipt Date: 20131127
  Transmission Date: 20140711
  Serious: Yes (Hospitalization)
  Sender: FDA-Public Use
  Company Number: NZ-AMGEN-NZLSP2013078226

PATIENT
  Age: 54 Year
  Sex: Female

DRUGS (6)
  1. NEULASTIM [Suspect]
     Indication: PROPHYLAXIS
     Dosage: 6 MG, 3 WEEKLY DURING CHEMOTHERAPY
     Route: 058
     Dates: start: 20130927
  2. DOCETAXEL [Suspect]
     Indication: BREAST CANCER
     Dosage: 75 MG/KG, 1 IN 3 WK
     Route: 042
     Dates: start: 20130926
  3. CYCLOPHOSPHAMIDE [Concomitant]
     Indication: BREAST CANCER
     Dosage: 600 MG/KG, 3 WEEKLY FOR 4 DOSES
     Route: 042
     Dates: start: 20130926
  4. METOCLOPRAMIDE [Concomitant]
     Dosage: 10 MG, 1 IN 3 WK
     Route: 048
     Dates: start: 20130926
  5. DEXAMETHASONE [Concomitant]
     Dosage: 8 MG, 1 IN 3 WK
     Route: 048
     Dates: start: 20130926
  6. ONDANSETRON [Concomitant]
     Dosage: 8 MG,1 IN 3 WK
     Dates: start: 20130926

REACTIONS (2)
  - Back pain [Recovered/Resolved]
  - Bone pain [Unknown]
